FAERS Safety Report 15741609 (Version 1)
Quarter: 2018Q4

REPORT INFORMATION
  Report Type: Spontaneous
  Country: US (occurrence: US)
  Receive Date: 20181219
  Receipt Date: 20181219
  Transmission Date: 20190205
  Serious: No
  Sender: FDA-Public Use
  Company Number: US-SA-2018SA387873

PATIENT
  Age: 46 Year
  Sex: Female

DRUGS (29)
  1. DOXYCYCLINE MONOHYDRATE [Concomitant]
     Active Substance: DOXYCYCLINE
  2. PHENTERMINE. [Concomitant]
     Active Substance: PHENTERMINE
  3. VICTOZA [Concomitant]
     Active Substance: LIRAGLUTIDE
  4. METHYLPRED [Concomitant]
     Active Substance: METHYLPREDNISOLONE
  5. TRAZODONE [Concomitant]
     Active Substance: TRAZODONE HYDROCHLORIDE
  6. LATUDA [Concomitant]
     Active Substance: LURASIDONE HYDROCHLORIDE
  7. LORATADINE. [Concomitant]
     Active Substance: LORATADINE
  8. ZOLPIDEM [Concomitant]
     Active Substance: ZOLPIDEM\ZOLPIDEM TARTRATE
  9. FLUTICASONE. [Concomitant]
     Active Substance: FLUTICASONE
  10. CLONAZEPAM. [Concomitant]
     Active Substance: CLONAZEPAM
  11. ATORVASTATIN [Concomitant]
     Active Substance: ATORVASTATIN
  12. CEFDINIR. [Concomitant]
     Active Substance: CEFDINIR
  13. OFLOXACIN. [Concomitant]
     Active Substance: OFLOXACIN
  14. NEOMYCIN AND POLYMYXIN B SULFATES AND HYDROCORTISONE [Concomitant]
     Active Substance: HYDROCORTISONE\NEOMYCIN SULFATE\POLYMYXIN B SULFATE
  15. ECONAZOLE. [Concomitant]
     Active Substance: ECONAZOLE NITRATE
  16. PROAIR HFA [Concomitant]
     Active Substance: ALBUTEROL SULFATE
  17. METFORMIN [Concomitant]
     Active Substance: METFORMIN HYDROCHLORIDE
  18. PREDNISONE. [Concomitant]
     Active Substance: PREDNISONE
  19. DULOXETINE. [Concomitant]
     Active Substance: DULOXETINE
  20. MONTELUKAST [Concomitant]
     Active Substance: MONTELUKAST SODIUM
  21. LISINOPRIL. [Concomitant]
     Active Substance: LISINOPRIL
  22. APAP;HYDROCODONE [Concomitant]
  23. DUPIXENT [Suspect]
     Active Substance: DUPILUMAB
     Indication: DERMATITIS ATOPIC
     Dosage: 300 MG, QOW
     Route: 058
     Dates: start: 20180506, end: 20181101
  24. BUSPIRONE [Concomitant]
     Active Substance: BUSPIRONE HYDROCHLORIDE
  25. ONDANSETRON [Concomitant]
     Active Substance: ONDANSETRON
  26. IPRATROPIUM BROMIDE AND ALBUTEROL SULFATE [Concomitant]
     Active Substance: ALBUTEROL SULFATE\IPRATROPIUM BROMIDE
  27. VENLAFAXINE [Concomitant]
     Active Substance: VENLAFAXINE HYDROCHLORIDE
  28. NITROFURANTIN [Concomitant]
     Active Substance: NITROFURANTOIN
  29. LITHIUM CARBONATE. [Concomitant]
     Active Substance: LITHIUM CARBONATE

REACTIONS (2)
  - Dermatitis atopic [Not Recovered/Not Resolved]
  - Product use issue [Not Recovered/Not Resolved]

NARRATIVE: CASE EVENT DATE: 2018
